FAERS Safety Report 15339812 (Version 1)
Quarter: 2018Q3

REPORT INFORMATION
  Report Type: Report from Study
  Country: ES (occurrence: ES)
  Receive Date: 20180831
  Receipt Date: 20180831
  Transmission Date: 20181010
  Serious: Yes (Death, Other)
  Sender: FDA-Public Use
  Company Number: PHHY2018ES027757

PATIENT
  Age: 54 Year
  Sex: Female

DRUGS (1)
  1. SANDOSTATIN LAR DEPOT [Suspect]
     Active Substance: OCTREOTIDE ACETATE
     Indication: NEUROENDOCRINE TUMOUR
     Dosage: 30 MG, UNK
     Route: 030
     Dates: start: 20180517, end: 20180723

REACTIONS (6)
  - Death [Fatal]
  - Cachexia [Unknown]
  - Abdominal discomfort [Not Recovered/Not Resolved]
  - Decreased appetite [Unknown]
  - Diarrhoea [Unknown]
  - Abdominal discomfort [Recovered/Resolved]

NARRATIVE: CASE EVENT DATE: 20180528
